FAERS Safety Report 25737192 (Version 2)
Quarter: 2025Q4

REPORT INFORMATION
  Report Type: Spontaneous
  Country: EU (occurrence: EU)
  Receive Date: 20250828
  Receipt Date: 20251013
  Transmission Date: 20260118
  Serious: Yes (Hospitalization)
  Sender: AMARIN
  Company Number: EU-Amarin Pharma  Inc-2025AMR000558

PATIENT
  Age: 62 Year
  Sex: Female

DRUGS (6)
  1. ICOSAPENT ETHYL [Suspect]
     Active Substance: ICOSAPENT ETHYL
     Indication: Myocardial ischaemia
     Route: 065
  2. ICOSAPENT ETHYL [Suspect]
     Active Substance: ICOSAPENT ETHYL
     Indication: Dyslipidaemia
  3. ICOSAPENT ETHYL [Suspect]
     Active Substance: ICOSAPENT ETHYL
     Indication: Cardiac failure
  4. ASPIRIN [Concomitant]
     Active Substance: ASPIRIN
     Indication: Product used for unknown indication
     Dosage: 100 (UNIT UNSPECIFIED)
  5. CARVEDILOL [Concomitant]
     Active Substance: CARVEDILOL
     Indication: Product used for unknown indication
  6. ATORVASTATIN\EZETIMIBE [Concomitant]
     Active Substance: ATORVASTATIN\EZETIMIBE
     Indication: Product used for unknown indication
     Dosage: 80 (UNIT UNSPECIFIED)

REACTIONS (6)
  - Pyrexia [Unknown]
  - Product dose omission issue [Unknown]
  - Off label use [Unknown]
  - Poor quality product administered [Unknown]
  - Product physical issue [Unknown]
  - Product odour abnormal [Unknown]

NARRATIVE: CASE EVENT DATE: 20250101
